FAERS Safety Report 6624285-6 (Version None)
Quarter: 2010Q1

REPORT INFORMATION
  Report Type: 
  Country: None (occurrence: None)
  Receive Date: 20100310
  Receipt Date: 20091105
  Transmission Date: 20100710
  Serious: No
  Sender: FDA-Public Use
  Company Number: US-BIOGENIDEC-2009BI035739

PATIENT
  Age: 58 Year
  Sex: Female

DRUGS (2)
  1. AVONEX [Suspect]
     Indication: MULTIPLE SCLEROSIS
     Route: 030
     Dates: start: 19990101, end: 20000101
  2. AVONEX [Suspect]
     Route: 030
     Dates: start: 20091027

REACTIONS (6)
  - BLOOD PRESSURE INCREASED [None]
  - CYSTITIS [None]
  - DIARRHOEA [None]
  - EAR INFECTION [None]
  - INFLUENZA LIKE ILLNESS [None]
  - OROPHARYNGEAL PAIN [None]
